FAERS Safety Report 7502240-1 (Version None)
Quarter: 2011Q2

REPORT INFORMATION
  Report Type: 
  Country: None (occurrence: None)
  Receive Date: 20110523
  Receipt Date: 20110523
  Transmission Date: 20111010
  Serious: Yes (Other)
  Sender: FDA-Public Use
  Company Number: None

PATIENT
  Age: 53 Year
  Sex: Female
  Weight: 104.3273 kg

DRUGS (1)
  1. VICTOZA [Suspect]
     Indication: TYPE 2 DIABETES MELLITUS
     Dates: start: 20100224, end: 20100608

REACTIONS (9)
  - FEELING HOT [None]
  - WEIGHT DECREASED [None]
  - INSOMNIA [None]
  - ABDOMINAL DISCOMFORT [None]
  - CONSTIPATION [None]
  - NAUSEA [None]
  - COLD SWEAT [None]
  - HYPERHIDROSIS [None]
  - PANCREATITIS [None]
